FAERS Safety Report 7637142-3 (Version None)
Quarter: 2011Q3

REPORT INFORMATION
  Report Type: 
  Country: None (occurrence: None)
  Receive Date: 20110722
  Receipt Date: 20110722
  Transmission Date: 20111222
  Serious: Yes (Disabling)
  Sender: FDA-Public Use
  Company Number: None

PATIENT
  Age: 59 Year
  Sex: Male
  Weight: 90.7194 kg

DRUGS (1)
  1. METOPROLOL SUCCINATE [Suspect]
     Indication: ATRIAL FIBRILLATION
     Dosage: 50MG 2X DAY
     Dates: start: 20100701, end: 20110501

REACTIONS (5)
  - PAIN IN EXTREMITY [None]
  - ACTIVITIES OF DAILY LIVING IMPAIRED [None]
  - GAIT DISTURBANCE [None]
  - MUSCULOSKELETAL PAIN [None]
  - ARTHRALGIA [None]
